FAERS Safety Report 18707562 (Version 1)
Quarter: 2021Q1

REPORT INFORMATION
  Report Type: Spontaneous
  Country: MY (occurrence: MY)
  Receive Date: 20210106
  Receipt Date: 20210106
  Transmission Date: 20210419
  Serious: Yes (Hospitalization, Other)
  Sender: FDA-Public Use
  Company Number: MY-AMGEN-MYSSP2021000409

PATIENT
  Age: 54 Year
  Sex: Male

DRUGS (1)
  1. PROLIA [Suspect]
     Active Substance: DENOSUMAB
     Indication: OSTEOPOROSIS
     Dosage: 60 MILLIGRAM
     Route: 065
     Dates: start: 201602

REACTIONS (3)
  - Pneumothorax [Unknown]
  - Pneumonia [Unknown]
  - Obliterative bronchiolitis [Unknown]

NARRATIVE: CASE EVENT DATE: 2016
